FAERS Safety Report 6500451-5 (Version None)
Quarter: 2009Q4

REPORT INFORMATION
  Report Type: 
  Country: None (occurrence: None)
  Receive Date: 20091216
  Receipt Date: 20091207
  Transmission Date: 20100525
  Serious: Yes (Other)
  Sender: FDA-Public Use
  Company Number: US-JNJFOC-20091202565

PATIENT
  Sex: Female
  Weight: 61.24 kg

DRUGS (3)
  1. ORTHO TRI-CYCLEN LO [Suspect]
     Indication: CONTRACEPTION
     Route: 048
  2. PLAN B [Suspect]
     Indication: CONTRACEPTION
     Route: 048
  3. PLAN B [Suspect]
     Route: 048

REACTIONS (9)
  - ABDOMINAL PAIN [None]
  - ABORTION SPONTANEOUS [None]
  - CHILLS [None]
  - DRUG EXPOSURE DURING PREGNANCY [None]
  - FATIGUE [None]
  - HEADACHE [None]
  - NAUSEA [None]
  - PREGNANCY ON ORAL CONTRACEPTIVE [None]
  - VOMITING [None]
